FAERS Safety Report 12364276 (Version 1)
Quarter: 2016Q2

REPORT INFORMATION
  Report Type: Spontaneous
  Country: US (occurrence: US)
  Receive Date: 20160512
  Receipt Date: 20160512
  Transmission Date: 20160815
  Serious: No
  Sender: FDA-Public Use
  Company Number: US-WARNER CHILCOTT, LLC-1052075

PATIENT
  Age: 64 Year
  Sex: Female

DRUGS (4)
  1. CARTIA XT [Concomitant]
     Active Substance: DILTIAZEM HYDROCHLORIDE
  2. ACIPHEX [Concomitant]
     Active Substance: RABEPRAZOLE SODIUM
  3. CRESTOR [Concomitant]
     Active Substance: ROSUVASTATIN CALCIUM
  4. ACTONEL [Suspect]
     Active Substance: RISEDRONATE SODIUM
     Route: 048
     Dates: start: 20150808, end: 20150808

REACTIONS (3)
  - Nausea [Recovered/Resolved]
  - Lethargy [Recovered/Resolved]
  - Pyrexia [Recovered/Resolved]
